FAERS Safety Report 7268245-3 (Version None)
Quarter: 2011Q1

REPORT INFORMATION
  Report Type: 
  Country: None (occurrence: None)
  Receive Date: 20110201
  Receipt Date: 20110127
  Transmission Date: 20110831
  Serious: Yes (Death, Other)
  Sender: FDA-Public Use
  Company Number: PHHY2010CA31559

PATIENT
  Sex: Female

DRUGS (2)
  1. SANDOSTATIN LAR [Suspect]
     Indication: NEUROENDOCRINE TUMOUR
     Dosage: 30 MG, QMO
     Route: 030
     Dates: start: 20100406, end: 20101201
  2. YTTRIUM (90 Y) [Concomitant]

REACTIONS (19)
  - ABDOMINAL PAIN UPPER [None]
  - ASTHENIA [None]
  - NEURALGIA [None]
  - INSOMNIA [None]
  - ABDOMINAL DISTENSION [None]
  - ABDOMINAL PAIN LOWER [None]
  - NEUROENDOCRINE TUMOUR [None]
  - MUSCULOSKELETAL PAIN [None]
  - NEOPLASM MALIGNANT [None]
  - WEIGHT INCREASED [None]
  - DECREASED APPETITE [None]
  - ABDOMINAL PAIN [None]
  - BACK PAIN [None]
  - FACIAL PAIN [None]
  - DYSPNOEA [None]
  - FATIGUE [None]
  - THERAPEUTIC EMBOLISATION [None]
  - CHOLECYSTITIS [None]
  - FLATULENCE [None]
